FAERS Safety Report 4504722-3 (Version None)
Quarter: 2004Q3

REPORT INFORMATION
  Report Type: 
  Country: None (occurrence: None)
  Receive Date: 20040927
  Receipt Date: 20040719
  Transmission Date: 20050211
  Serious: No
  Sender: FDA-Public Use
  Company Number: USA040772377

PATIENT
  Age: 30 Year
  Sex: Male
  Weight: 93 kg

DRUGS (5)
  1. STRATTERA [Suspect]
     Indication: ATTENTION DEFICIT/HYPERACTIVITY DISORDER
     Dosage: 80 MG DAY
     Dates: start: 20040708, end: 20040701
  2. PROCARDIA [Concomitant]
  3. PAXIL [Concomitant]
  4. BEXTRA [Concomitant]
  5. PRILOSEC [Concomitant]

REACTIONS (4)
  - AGITATION [None]
  - INSOMNIA [None]
  - IRRITABILITY [None]
  - MIGRAINE [None]
